FAERS Safety Report 11686574 (Version 5)
Quarter: 2015Q4

REPORT INFORMATION
  Report Type: Spontaneous
  Country: US (occurrence: US)
  Receive Date: 20151030
  Receipt Date: 20151214
  Transmission Date: 20160304
  Serious: Yes (Other)
  Sender: FDA-Public Use
  Company Number: US-PFIZER INC-2015331165

PATIENT
  Age: 55 Year
  Sex: Male
  Weight: 91 kg

DRUGS (1)
  1. XALKORI [Suspect]
     Active Substance: CRIZOTINIB
     Indication: LUNG NEOPLASM MALIGNANT
     Dosage: 250 MG, 1 CAPSULE TWICE DAILY (BID)
     Route: 048
     Dates: start: 20150922, end: 20151119

REACTIONS (10)
  - Dyspnoea [Unknown]
  - Disorientation [Unknown]
  - Cough [Unknown]
  - Decreased appetite [Unknown]
  - Disease progression [Unknown]
  - Loss of consciousness [Unknown]
  - Vomiting [Unknown]
  - Visual impairment [Unknown]
  - Pulmonary embolism [Unknown]
  - Lung neoplasm malignant [Unknown]

NARRATIVE: CASE EVENT DATE: 2015
